FAERS Safety Report 16749824 (Version 1)
Quarter: 2019Q3

REPORT INFORMATION
  Report Type: Spontaneous
  Country: JP (occurrence: JP)
  Receive Date: 20190828
  Receipt Date: 20190828
  Transmission Date: 20191005
  Serious: Yes (Other)
  Sender: FDA-Public Use
  Company Number: PHJP2019JP010906

PATIENT
  Age: 7 Day

DRUGS (3)
  1. EVEROLIMUS. [Suspect]
     Active Substance: EVEROLIMUS
     Indication: RHABDOMYOMA
     Dosage: 3 MG/M2, UNK
     Route: 065
  2. EVEROLIMUS. [Suspect]
     Active Substance: EVEROLIMUS
     Dosage: 2 MG/M2, UNK
     Route: 065
  3. EVEROLIMUS. [Suspect]
     Active Substance: EVEROLIMUS
     Dosage: 0.5 MG/M2, UNK
     Route: 065

REACTIONS (5)
  - Drug level increased [Recovering/Resolving]
  - White blood cell count decreased [Unknown]
  - Blood count abnormal [Unknown]
  - Product use in unapproved indication [Unknown]
  - Renal disorder [Unknown]
